FAERS Safety Report 5572915-2 (Version None)
Quarter: 2007Q4

REPORT INFORMATION
  Report Type: 
  Country: None (occurrence: None)
  Receive Date: 20071224
  Receipt Date: 20071218
  Transmission Date: 20080405
  Serious: Yes (Death)
  Sender: FDA-Public Use
  Company Number: US-NOVOPROD-270371

PATIENT
  Sex: Male
  Weight: 71 kg

DRUGS (2)
  1. ACTRAPID [Suspect]
     Indication: TYPE 2 DIABETES MELLITUS
     Dosage: 14 IU, TID
     Route: 058
     Dates: end: 20070518
  2. PROTAPHANE [Suspect]
     Indication: TYPE 2 DIABETES MELLITUS
     Dosage: 18 IU, QD
     Route: 058
     Dates: end: 20070518

REACTIONS (1)
  - SUDDEN DEATH [None]
